FAERS Safety Report 19722286 (Version 1)
Quarter: 2021Q3

REPORT INFORMATION
  Report Type: Spontaneous
  Country: DE (occurrence: DE)
  Receive Date: 20210819
  Receipt Date: 20210819
  Transmission Date: 20211014
  Serious: Yes (Hospitalization)
  Sender: FDA-Public Use
  Company Number: DE-MYLANLABS-2021M1052136

PATIENT
  Age: 78 Year
  Sex: Female

DRUGS (12)
  1. ACETYLSALICYLIC ACID [Suspect]
     Active Substance: ASPIRIN
     Indication: PRODUCT USED FOR UNKNOWN INDICATION
     Dosage: 100 MG, 1?0?0?0
  2. CLOPIDOGREL [Suspect]
     Active Substance: CLOPIDOGREL BISULFATE
     Indication: PRODUCT USED FOR UNKNOWN INDICATION
     Dosage: 75 MG, 1?0?0?0
  3. BISOPROLOL [Concomitant]
     Active Substance: BISOPROLOL
     Dosage: 2.5 MG, 1?0?0?0
  4. GLYCEROLTRINITRAT [Concomitant]
     Active Substance: NITROGLYCERIN
     Dosage: 0.4 MG, BEDARF
  5. HYDROCHLOROTHIAZID [Concomitant]
     Active Substance: HYDROCHLOROTHIAZIDE
     Dosage: 12.5|320 MG, 1?0?0?0
  6. INSULIN DETEMIR [Concomitant]
     Active Substance: INSULIN DETEMIR
     Dosage: 28 IE, 0?0?0?1
  7. PANTOPRAZOL                        /01263201/ [Concomitant]
     Active Substance: PANTOPRAZOLE
     Dosage: 40 MG, 1?0?0?0
  8. ROSUVASTATIN. [Concomitant]
     Active Substance: ROSUVASTATIN
     Dosage: 20 MG, 0?0?1?0
  9. INSULIN ASPART [Concomitant]
     Active Substance: INSULIN ASPART
     Dosage: NACH PLAN
  10. AMLODIPIN                          /00972401/ [Concomitant]
     Active Substance: AMLODIPINE BESYLATE
     Dosage: 5 MG, 1?0?1?0
  11. COLECALCIFEROL [Concomitant]
     Active Substance: CHOLECALCIFEROL
     Dosage: 20000 IE / WOCHE, 1X
  12. INSULIN DETEMIR [Concomitant]
     Active Substance: INSULIN DETEMIR
     Dosage: 16 IE, 0?1?0?0

REACTIONS (6)
  - Haematochezia [Recovering/Resolving]
  - Weight increased [Unknown]
  - Anaemia [Recovering/Resolving]
  - Dyspnoea exertional [Recovering/Resolving]
  - Abdominal pain upper [Recovering/Resolving]
  - Chest discomfort [Recovering/Resolving]
